FAERS Safety Report 5337852-7 (Version None)
Quarter: 2007Q2

REPORT INFORMATION
  Report Type: 
  Country: None (occurrence: None)
  Receive Date: 20070308
  Receipt Date: 20070208
  Transmission Date: 20071010
  Serious: No
  Sender: FDA-Public Use
  Company Number: IND-AE-07-SAN-005

PATIENT
  Age: 96 Year
  Sex: Male

DRUGS (1)
  1. SANCTURA [Suspect]

REACTIONS (1)
  - DIARRHOEA [None]
